FAERS Safety Report 12048359 (Version 1)
Quarter: 2016Q1

REPORT INFORMATION
  Report Type: Report from Study
  Country: US (occurrence: US)
  Receive Date: 20160208
  Receipt Date: 20160208
  Transmission Date: 20160526
  Serious: No
  Sender: FDA-Public Use
  Company Number: US-ABBVIE-15P-163-1376051-00

PATIENT
  Age: 59 Year
  Sex: Male

DRUGS (3)
  1. HUMIRA [Suspect]
     Active Substance: ADALIMUMAB
     Route: 058
  2. HUMIRA [Suspect]
     Active Substance: ADALIMUMAB
     Indication: CROHN^S DISEASE
     Dosage: (4 PENS) DAY 1
     Route: 058
     Dates: start: 20150402, end: 20150402
  3. HUMIRA [Suspect]
     Active Substance: ADALIMUMAB
     Dosage: (2 PENS) DAY 15
     Route: 058

REACTIONS (1)
  - Fatigue [Unknown]
